FAERS Safety Report 16733488 (Version 2)
Quarter: 2025Q2

REPORT INFORMATION
  Report Type: Spontaneous
  Country: FR (occurrence: FR)
  Receive Date: 20190823
  Receipt Date: 20250516
  Transmission Date: 20250716
  Serious: Yes (Death, Life-Threatening, Hospitalization)
  Sender: TEVA
  Company Number: None

PATIENT
  Age: 36 Year
  Sex: Male
  Weight: 71 kg

DRUGS (3)
  1. ETOPOSIDE [Suspect]
     Active Substance: ETOPOSIDE
     Indication: Testis cancer
     Dosage: DOSAGE TEXT: 100 MG/M2 PER DAY
     Route: 041
     Dates: start: 20190701, end: 20190705
  2. BLEOMYCIN SULFATE [Suspect]
     Active Substance: BLEOMYCIN SULFATE
     Indication: Testis cancer
     Route: 041
     Dates: start: 20190701, end: 20190708
  3. CISPLATIN [Suspect]
     Active Substance: CISPLATIN
     Indication: Testis cancer
     Dosage: DOSAGE TEXT: 20 MG/M2
     Route: 041
     Dates: start: 20190701, end: 20190705

REACTIONS (2)
  - Septic shock [Fatal]
  - Agranulocytosis [Fatal]

NARRATIVE: CASE EVENT DATE: 20190711
